FAERS Safety Report 18851964 (Version 1)
Quarter: 2021Q1

REPORT INFORMATION
  Report Type: Spontaneous
  Country: US (occurrence: US)
  Receive Date: 20210204
  Receipt Date: 20210204
  Transmission Date: 20210420
  Serious: No
  Sender: FDA-Public Use
  Company Number: None

PATIENT
  Age: 73 Year
  Sex: Male

DRUGS (1)
  1. ZANTAC [Suspect]
     Active Substance: RANITIDINE HYDROCHLORIDE

REACTIONS (6)
  - Chest discomfort [None]
  - Diabetes mellitus [None]
  - Paraesthesia [None]
  - Night sweats [None]
  - Arthralgia [None]
  - Heart rate irregular [None]
